FAERS Safety Report 13923165 (Version 1)
Quarter: 2017Q3

REPORT INFORMATION
  Report Type: Spontaneous
  Country: US (occurrence: None)
  Receive Date: 20170830
  Receipt Date: 20170830
  Transmission Date: 20171127
  Serious: No
  Sender: FDA-Public Use
  Company Number: None

PATIENT
  Age: 62 Year
  Sex: Male

DRUGS (3)
  1. ADEMPAS [Suspect]
     Active Substance: RIOCIGUAT
     Indication: CONNECTIVE TISSUE DISORDER
     Route: 048
     Dates: start: 20151204
  2. ADEMPAS [Suspect]
     Active Substance: RIOCIGUAT
     Indication: PULMONARY ARTERIAL HYPERTENSION
     Route: 048
     Dates: start: 20151204
  3. ADEMPAS [Suspect]
     Active Substance: RIOCIGUAT
     Indication: HEART DISEASE CONGENITAL
     Route: 048
     Dates: start: 20151204

REACTIONS (4)
  - Pyrexia [None]
  - Pneumonia [None]
  - Pleuritic pain [None]
  - Cough [None]

NARRATIVE: CASE EVENT DATE: 20170816
